FAERS Safety Report 6916720-0 (Version None)
Quarter: 2010Q3

REPORT INFORMATION
  Report Type: 
  Country: None (occurrence: None)
  Receive Date: 20100805
  Receipt Date: 20100610
  Transmission Date: 20110219
  Serious: Yes (Hospitalization)
  Sender: FDA-Public Use
  Company Number: WAES 1003USA00528

PATIENT
  Age: 65 Year
  Sex: Female

DRUGS (11)
  1. CAP VORINOSTAT [Suspect]
     Indication: MULTIPLE MYELOMA
     Dosage: 400 MG/PO ; 400 MG/PO ; 400 MG/PO ; 300 MG/DAILY PO
     Route: 048
     Dates: start: 20100222, end: 20100305
  2. CAP VORINOSTAT [Suspect]
     Indication: MULTIPLE MYELOMA
     Dosage: 400 MG/PO ; 400 MG/PO ; 400 MG/PO ; 300 MG/DAILY PO
     Route: 048
     Dates: start: 20100315, end: 20100401
  3. CAP VORINOSTAT [Suspect]
     Indication: MULTIPLE MYELOMA
     Dosage: 400 MG/PO ; 400 MG/PO ; 400 MG/PO ; 300 MG/DAILY PO
     Route: 048
     Dates: start: 20100201
  4. CAP VORINOSTAT [Suspect]
     Indication: MULTIPLE MYELOMA
     Dosage: 400 MG/PO ; 400 MG/PO ; 400 MG/PO ; 300 MG/DAILY PO
     Route: 048
     Dates: start: 20100426
  5. BORTEZOMIB [Suspect]
     Indication: MULTIPLE MYELOMA
     Dosage: 1.3 MG/M[2]/IV ; 2.3 MG/IV ; 1 MG/M[2]/IV
     Route: 042
     Dates: start: 20100222, end: 20100409
  6. BORTEZOMIB [Suspect]
     Indication: MULTIPLE MYELOMA
     Dosage: 1.3 MG/M[2]/IV ; 2.3 MG/IV ; 1 MG/M[2]/IV
     Route: 042
     Dates: start: 20100201
  7. BORTEZOMIB [Suspect]
     Indication: MULTIPLE MYELOMA
     Dosage: 1.3 MG/M[2]/IV ; 2.3 MG/IV ; 1 MG/M[2]/IV
     Route: 042
     Dates: start: 20100426
  8. ACETYLCYSTEINE [Concomitant]
  9. ACIC [Concomitant]
  10. NOVALGIN [Concomitant]
  11. PANTOZOL [Concomitant]

REACTIONS (14)
  - BLOOD GLUCOSE INCREASED [None]
  - BLOOD LACTATE DEHYDROGENASE INCREASED [None]
  - BLOOD SODIUM DECREASED [None]
  - CONJUNCTIVITIS [None]
  - DIARRHOEA [None]
  - GENERAL PHYSICAL CONDITION [None]
  - GENERAL PHYSICAL CONDITION ABNORMAL [None]
  - HAEMATOCRIT DECREASED [None]
  - HAEMOGLOBIN DECREASED [None]
  - PLATELET COUNT DECREASED [None]
  - SINUSITIS [None]
  - TACHYPNOEA [None]
  - THROMBOSIS [None]
  - UPPER RESPIRATORY TRACT INFECTION [None]
